FAERS Safety Report 24727167 (Version 1)
Quarter: 2024Q4

REPORT INFORMATION
  Report Type: Spontaneous
  Country: US (occurrence: None)
  Receive Date: 20241211
  Receipt Date: 20241211
  Transmission Date: 20250114
  Serious: Yes (Life-Threatening, Disabling)
  Sender: Public
  Company Number: None

PATIENT
  Age: 33 Year
  Sex: Female
  Weight: 40.5 kg

DRUGS (2)
  1. TRAZODONE [Suspect]
     Active Substance: TRAZODONE HYDROCHLORIDE
     Indication: Initial insomnia
     Dosage: OTHER QUANTITY : 1 TABLET(S);?FREQUENCY : AT BEDTIME;?
     Route: 048
  2. LINZESS [Concomitant]
     Active Substance: LINACLOTIDE

REACTIONS (7)
  - Dizziness [None]
  - Syncope [None]
  - Loss of consciousness [None]
  - Hypotension [None]
  - Pallor [None]
  - Dysstasia [None]
  - Chest pain [None]

NARRATIVE: CASE EVENT DATE: 20241209
